FAERS Safety Report 25494259 (Version 1)
Quarter: 2025Q2

REPORT INFORMATION
  Report Type: Spontaneous
  Country: US (occurrence: None)
  Receive Date: 20250627
  Receipt Date: 20250627
  Transmission Date: 20250717
  Serious: Yes (Hospitalization)
  Sender: FDA-CTU
  Company Number: None

PATIENT
  Sex: Male

DRUGS (10)
  1. FABRAZYME [Suspect]
     Active Substance: AGALSIDASE BETA
     Indication: Fabry^s disease
     Dosage: RECONSTITUTE EACH 35MG VIAL WITH 7.2ML SWFI; 2 VIALS NEEDED PER DOSE. WITHDRAW 75MG (15ML) ?AND ADD TO NSS 235ML TO KEEP TOTAL VOLUME AT 250ML. INFUSE 75MG INTRAVENOUSLY EVERY 2 WEEKS OVER ?2.5 HOURS VIA CURLIN PUMP.
     Route: 042
     Dates: start: 20250314
  2. BD POSIFLUSH [Concomitant]
  3. FUROSEMIDE [Concomitant]
     Active Substance: FUROSEMIDE
  4. LEVETIRACETAM [Concomitant]
     Active Substance: LEVETIRACETAM
  5. LISINOPRIL [Concomitant]
     Active Substance: LISINOPRIL
  6. MONOJECT PHARMA GRADE FLU [Concomitant]
  7. SODIUM CHLORIDE [Concomitant]
     Active Substance: SODIUM CHLORIDE
  8. NORMAL SALINE I.V. FLUSH [Concomitant]
  9. PRAVASTATIN [Concomitant]
     Active Substance: PRAVASTATIN
  10. PREDNISONE [Concomitant]
     Active Substance: PREDNISONE

REACTIONS (1)
  - Cerebrovascular accident [None]
